FAERS Safety Report 8133650-X (Version None)
Quarter: 2012Q1

REPORT INFORMATION
  Report Type: 
  Country: None (occurrence: None)
  Receive Date: 20120213
  Receipt Date: 20120209
  Transmission Date: 20120608
  Serious: Yes (Hospitalization, Other)
  Sender: FDA-Public Use
  Company Number: US-AMGEN-USASP2011061819

PATIENT
  Age: 70 Year
  Sex: Male

DRUGS (3)
  1. ENBREL [Suspect]
     Indication: RHEUMATOID ARTHRITIS
     Dosage: 50 MG, QWK
     Dates: start: 20111014
  2. PREDNISONE TAB [Concomitant]
     Dosage: UNK
  3. ENBREL [Suspect]
     Dosage: 50 MG, QWK
     Dates: start: 20110901

REACTIONS (19)
  - DIARRHOEA [None]
  - SLEEP APNOEA SYNDROME [None]
  - ARTHRALGIA [None]
  - WEIGHT DECREASED [None]
  - RASH PRURITIC [None]
  - AORTIC STENOSIS [None]
  - CARDIAC FAILURE CONGESTIVE [None]
  - OROPHARYNGEAL PAIN [None]
  - BLISTER [None]
  - PRURITUS [None]
  - ANGINA PECTORIS [None]
  - FATIGUE [None]
  - FUNGAL SKIN INFECTION [None]
  - CORONARY ARTERY DISEASE [None]
  - MUSCULOSKELETAL PAIN [None]
  - DIABETIC NEUROPATHY [None]
  - RHINORRHOEA [None]
  - SKIN DISCOLOURATION [None]
  - DECREASED APPETITE [None]
